FAERS Safety Report 23667681 (Version 7)
Quarter: 2025Q2

REPORT INFORMATION
  Report Type: Report from Study
  Country: US (occurrence: US)
  Receive Date: 20240325
  Receipt Date: 20250602
  Transmission Date: 20250717
  Serious: Yes (Death, Hospitalization, Other)
  Sender: TAKEDA
  Company Number: US-SHIRE-US201729916

PATIENT
  Age: 68 Year
  Sex: Female

DRUGS (27)
  1. VELAGLUCERASE ALFA [Suspect]
     Active Substance: VELAGLUCERASE ALFA
     Indication: Gaucher^s disease type I
     Dosage: 3200 MILLIGRAM, 2/MONTH
     Dates: start: 20100420
  2. VELAGLUCERASE ALFA [Suspect]
     Active Substance: VELAGLUCERASE ALFA
     Indication: Gaucher^s disease
     Dosage: 400 INTERNATIONAL UNIT, Q2WEEKS
     Dates: start: 20240611
  3. VELAGLUCERASE ALFA [Suspect]
     Active Substance: VELAGLUCERASE ALFA
     Dosage: 2400 INTERNATIONAL UNIT, 2/MONTH
  4. ABILIFY [Concomitant]
     Active Substance: ARIPIPRAZOLE
  5. ADVAIR HFA [Concomitant]
     Active Substance: FLUTICASONE PROPIONATE\SALMETEROL XINAFOATE
  6. ARICEPT [Concomitant]
     Active Substance: DONEPEZIL HYDROCHLORIDE
  7. ASPIRIN [Concomitant]
     Active Substance: ASPIRIN
  8. ATORVASTATIN [Concomitant]
     Active Substance: ATORVASTATIN
  9. CALCIUM\VITAMIN D [Concomitant]
     Active Substance: CALCIUM\VITAMIN D
  10. CLONAZEPAM [Concomitant]
     Active Substance: CLONAZEPAM
  11. DILTIAZEM [Concomitant]
     Active Substance: DILTIAZEM
  12. DIPHENHYDRAMINE [Concomitant]
     Active Substance: DIPHENHYDRAMINE
  13. DIPHENHYDRAMINE [Concomitant]
     Active Substance: DIPHENHYDRAMINE
  14. DOXAZOSIN [Concomitant]
     Active Substance: DOXAZOSIN MESYLATE
  15. EPINEPHRINE [Concomitant]
     Active Substance: EPINEPHRINE
  16. FLUOXETINE [Concomitant]
     Active Substance: FLUOXETINE HYDROCHLORIDE
  17. Hep lock [Concomitant]
  18. HYDROCHLOROTHIAZIDE [Concomitant]
     Active Substance: HYDROCHLOROTHIAZIDE
  19. IBUPROFEN [Concomitant]
     Active Substance: IBUPROFEN
  20. MUCINEX [Concomitant]
     Active Substance: GUAIFENESIN
  21. NEURONTIN [Concomitant]
     Active Substance: GABAPENTIN
  22. POLYETHYLENE GLYCOL [Concomitant]
     Active Substance: POLYETHYLENE GLYCOL
  23. SODIUM CHLORIDE [Concomitant]
     Active Substance: SODIUM CHLORIDE
  24. SPIRIVA [Concomitant]
     Active Substance: TIOTROPIUM BROMIDE MONOHYDRATE
  25. STERILE WATER [Concomitant]
     Active Substance: WATER
  26. VITAMIN B12 [Concomitant]
     Active Substance: CYANOCOBALAMIN
  27. DIOVAN [Concomitant]
     Active Substance: VALSARTAN

REACTIONS (14)
  - Death [Fatal]
  - Dyspnoea [Not Recovered/Not Resolved]
  - Asthenia [Not Recovered/Not Resolved]
  - Dyspnoea at rest [Unknown]
  - Aortic stenosis [Not Recovered/Not Resolved]
  - Insurance issue [Unknown]
  - Product dose omission issue [Unknown]
  - Device issue [Unknown]
  - Lethargy [Unknown]
  - Flat affect [Unknown]
  - Confusional state [Unknown]
  - Hypoacusis [Unknown]
  - Hypotonia [Unknown]
  - Dyspnoea exertional [Unknown]

NARRATIVE: CASE EVENT DATE: 20171108
